FAERS Safety Report 5370185-1 (Version None)
Quarter: 2007Q2

REPORT INFORMATION
  Report Type: 
  Country: None (occurrence: None)
  Receive Date: 20070613
  Receipt Date: 20070417
  Transmission Date: 20071010
  Serious: No
  Sender: FDA-Public Use
  Company Number: IND-AE-07-SAN-019

PATIENT
  Sex: Female

DRUGS (1)
  1. SANCTURA [Suspect]
     Indication: BLADDER DISORDER
     Dosage: ORAL
     Route: 048

REACTIONS (4)
  - DYSPNOEA [None]
  - HYPERSENSITIVITY [None]
  - LETHARGY [None]
  - RASH PRURITIC [None]
